FAERS Safety Report 6376540-5 (Version None)
Quarter: 2009Q3

REPORT INFORMATION
  Report Type: 
  Country: None (occurrence: None)
  Receive Date: 20090922
  Receipt Date: 20090922
  Transmission Date: 20100115
  Serious: Yes (Life-Threatening, Hospitalization, Disabling)
  Sender: FDA-Public Use
  Company Number: None

PATIENT
  Age: 24 Year
  Sex: Male
  Weight: 72.5755 kg

DRUGS (1)
  1. OXYCONTIN [Suspect]
     Indication: GASTROINTESTINAL PAIN
     Dosage: 1 TABLET 4H PO
     Route: 048
     Dates: start: 20060314, end: 20070401

REACTIONS (12)
  - ACTIVITIES OF DAILY LIVING IMPAIRED [None]
  - CONVULSION [None]
  - DISTURBANCE IN SOCIAL BEHAVIOUR [None]
  - DRUG DEPENDENCE [None]
  - FEELING ABNORMAL [None]
  - LETHARGY [None]
  - LOSS OF EMPLOYMENT [None]
  - MUSCLE SPASMS [None]
  - PERSONALITY CHANGE [None]
  - SELF ESTEEM DECREASED [None]
  - SUICIDAL IDEATION [None]
  - VOMITING [None]
